FAERS Safety Report 5796922-X (Version None)
Quarter: 2008Q3

REPORT INFORMATION
  Report Type: 
  Country: None (occurrence: None)
  Receive Date: 20080701
  Receipt Date: 20080624
  Transmission Date: 20090109
  Serious: Yes (Death, Other)
  Sender: FDA-Public Use
  Company Number: US-BAXTER-2006BH013419

PATIENT
  Age: 5 Day
  Sex: Female

DRUGS (2)
  1. HEPARIN SODIUM INJECTION [Suspect]
     Indication: INTRAVENOUS CATHETER MANAGEMENT
     Route: 042
     Dates: start: 20060916, end: 20060916
  2. HEPARIN SODIUM INJECTION [Suspect]
     Route: 042
     Dates: start: 20060916, end: 20060916

REACTIONS (3)
  - DEATH [None]
  - MEDICATION ERROR [None]
  - OVERDOSE [None]
